FAERS Safety Report 21261331 (Version 1)
Quarter: 2022Q3

REPORT INFORMATION
  Report Type: Spontaneous
  Country: US (occurrence: US)
  Receive Date: 20220827
  Receipt Date: 20220827
  Transmission Date: 20221026
  Serious: No
  Sender: FDA-Public Use
  Company Number: US-NOVARTISTESTPH-NVSC2022US191057

PATIENT
  Sex: Male
  Weight: 122.47 kg

DRUGS (1)
  1. ETODOLAC [Suspect]
     Active Substance: ETODOLAC
     Indication: Headache
     Dosage: 1 DOSAGE FORM, BID  (QUANTITY 60)
     Route: 048
     Dates: start: 20210903

REACTIONS (2)
  - Headache [Not Recovered/Not Resolved]
  - Drug ineffective [Not Recovered/Not Resolved]
